FAERS Safety Report 9879371 (Version 3)
Quarter: 2014Q1

REPORT INFORMATION
  Report Type: Report from Study
  Country: JP (occurrence: JP)
  Receive Date: 20140206
  Receipt Date: 20140318
  Transmission Date: 20141002
  Serious: Yes (Life-Threatening, Hospitalization)
  Sender: FDA-Public Use
  Company Number: PHHY2012JP056984

PATIENT
  Age: 70 Year
  Sex: Male

DRUGS (35)
  1. NEORAL [Suspect]
     Indication: RENAL TRANSPLANT
     Dosage: 200 MG, DAILY
     Route: 048
     Dates: start: 20110518, end: 20110530
  2. NEORAL [Suspect]
     Dosage: 150 MG, DAILY
     Route: 048
     Dates: start: 20110604, end: 20110613
  3. NEORAL [Suspect]
     Dosage: 100 MG, DAILY
     Route: 048
     Dates: start: 20110621
  4. NEORAL [Suspect]
     Dosage: 170 MG,
     Route: 048
     Dates: start: 20111209, end: 20120109
  5. NEORAL [Suspect]
     Dosage: 120 MG
     Route: 048
     Dates: start: 20111229, end: 20120109
  6. NEORAL [Suspect]
     Dosage: 100 MG
     Route: 048
     Dates: start: 20120110, end: 20120129
  7. NEORAL [Suspect]
     Dosage: 150 MG
     Route: 048
     Dates: start: 20120130, end: 20120410
  8. NEORAL [Suspect]
     Dosage: 200 MG
     Route: 048
     Dates: start: 20120411
  9. SANDIMMUN [Suspect]
     Indication: RENAL TRANSPLANT
     Dosage: 100 MG
     Dates: start: 20110531
  10. SANDIMMUN [Suspect]
     Dosage: 100 MG, DAILY
     Dates: start: 20110601, end: 20110603
  11. SANDIMMUN [Suspect]
     Dosage: 50 MG, DAILY
     Dates: start: 20110614, end: 20110620
  12. SIMULECT [Concomitant]
     Indication: RENAL TRANSPLANT
     Dosage: 20 MG
     Route: 042
     Dates: start: 20110531
  13. SIMULECT [Concomitant]
     Dosage: 20 MG, ONCE/SINGLE
     Route: 042
     Dates: start: 20110601
  14. SIMULECT [Concomitant]
     Dosage: 20 MG, ONCE/SINGLE
     Route: 042
     Dates: end: 20110604
  15. CELLCEPT [Concomitant]
     Indication: RENAL TRANSPLANT
     Dosage: 1000 MG, UNK
     Route: 048
     Dates: start: 20110518
  16. CELLCEPT [Concomitant]
     Dosage: 1500 MG, UNK
     Route: 048
  17. CELLCEPT [Concomitant]
     Dosage: 1000 MG, UNK
     Route: 048
  18. RITUXAN [Concomitant]
     Dosage: 500 MG, UNK
     Route: 042
     Dates: start: 20110517, end: 20110517
  19. SOLU-MEDROL [Concomitant]
     Indication: RENAL TRANSPLANT
     Dosage: 250 MG, UNK
     Route: 042
     Dates: start: 20110601
  20. SOLU-MEDROL [Concomitant]
     Dosage: 160 MG, UNK
     Route: 042
  21. SOLU-MEDROL [Concomitant]
     Dosage: 120 MG, UNK
     Route: 042
  22. SOLU-MEDROL [Concomitant]
     Dosage: 80 MG, UNK
     Route: 042
  23. SOLU-MEDROL [Concomitant]
     Dosage: 40 MG, UNK
     Route: 042
  24. SOLU-MEDROL [Concomitant]
     Dosage: 20 MG, UNK
     Route: 042
     Dates: end: 20110621
  25. MEDROL [Concomitant]
     Indication: RENAL TRANSPLANT
     Dosage: 16 MG, UNK
     Route: 048
     Dates: start: 20110622
  26. MEDROL [Concomitant]
     Dosage: 8 MG, UNK
     Route: 048
     Dates: start: 20110622
  27. MEDROL [Concomitant]
     Dosage: 4 MG, UNK
     Route: 048
     Dates: start: 20110622
  28. MEDROL [Concomitant]
     Dosage: 6 MG, UNK
  29. DENOSINE [Concomitant]
     Indication: CYTOMEGALOVIRUS PANCREATITIS
     Dosage: 200 MG, UNK
     Route: 042
     Dates: start: 20110622, end: 20110706
  30. BAKTAR [Concomitant]
     Dosage: 480 MG, UNK
     Route: 048
     Dates: start: 20110617, end: 20110620
  31. FUNGUARD [Concomitant]
     Dosage: 100 MG, UNK
     Route: 042
     Dates: start: 20110621, end: 20110729
  32. MEROPEN [Concomitant]
     Dosage: 3 G, UNK
     Route: 042
     Dates: start: 20110614, end: 20110721
  33. CIPROXAN [Concomitant]
     Dosage: 600 MG, UNK
     Route: 042
     Dates: start: 20110708, end: 20110714
  34. TIENAM [Concomitant]
     Dosage: 1.5 G, UNK
     Route: 042
     Dates: start: 20110627, end: 20110705
  35. VANCOMYCIN [Concomitant]
     Dosage: 1 G, UNK
     Route: 042
     Dates: start: 20110706, end: 20110729

REACTIONS (6)
  - Peritonitis [Recovering/Resolving]
  - Infection [Recovering/Resolving]
  - Pancreatitis [Recovering/Resolving]
  - Cytomegalovirus infection [Recovering/Resolving]
  - Ileus paralytic [Recovering/Resolving]
  - Suture related complication [Recovering/Resolving]
